FAERS Safety Report 6668675-4 (Version None)
Quarter: 2010Q2

REPORT INFORMATION
  Report Type: 
  Country: None (occurrence: None)
  Receive Date: 20100406
  Receipt Date: 20100329
  Transmission Date: 20101027
  Serious: Yes (Other)
  Sender: FDA-Public Use
  Company Number: PHHY2010CA10464

PATIENT
  Sex: Male

DRUGS (5)
  1. EXJADE [Suspect]
     Indication: MYELODYSPLASTIC SYNDROME
     Dosage: 750 MG, QD
     Route: 048
     Dates: start: 20100124
  2. EXJADE [Suspect]
     Dosage: 1000 MG, QD
     Route: 048
     Dates: start: 20100304
  3. ZOCOR [Concomitant]
     Dosage: 40 MG, QD
     Route: 048
  4. ASPIRIN [Concomitant]
  5. OXYCODONE HCL AND ACETAMINOPHEN [Concomitant]

REACTIONS (6)
  - BLOOD CREATININE INCREASED [None]
  - CHEST PAIN [None]
  - DIARRHOEA [None]
  - HEADACHE [None]
  - SERUM FERRITIN INCREASED [None]
  - SPLENOMEGALY [None]
